FAERS Safety Report 6422506-6 (Version None)
Quarter: 2009Q4

REPORT INFORMATION
  Report Type: 
  Country: None (occurrence: None)
  Receive Date: 20091102
  Receipt Date: 20090918
  Transmission Date: 20100525
  Serious: Yes (Disabling)
  Sender: FDA-Public Use
  Company Number: JP-ASTRAZENECA-2009SE09636

PATIENT
  Age: 26064 Day
  Sex: Male
  Weight: 57 kg

DRUGS (4)
  1. DIPRIVAN [Suspect]
     Indication: SEDATION
     Dosage: ADMINISTERED AT 20MG/HOUR AND SUBSEQUENTLY ASMINISTERED AT 40-160MG/HOUR.
     Route: 042
     Dates: start: 20090804, end: 20090810
  2. SOLU-MEDROL [Concomitant]
     Route: 042
     Dates: start: 20090801, end: 20090803
  3. LASIX [Concomitant]
     Indication: POLYURIA
     Route: 041
     Dates: start: 20090804, end: 20090810
  4. PREDONINE [Concomitant]
     Route: 065
     Dates: start: 20090801

REACTIONS (1)
  - HYPOXIC ENCEPHALOPATHY [None]
